FAERS Safety Report 4540458-0 (Version None)
Quarter: 2004Q4

REPORT INFORMATION
  Report Type: 
  Country: None (occurrence: None)
  Receive Date: 20041229
  Receipt Date: 20041220
  Transmission Date: 20050328
  Serious: Yes (Hospitalization)
  Sender: FDA-Public Use
  Company Number: US-JNJFOC-20040902071

PATIENT
  Sex: Female
  Weight: 52.16 kg

DRUGS (4)
  1. REMICADE [Suspect]
     Dosage: 210MG
     Route: 042
  2. REMICADE [Suspect]
     Indication: RHEUMATOID ARTHRITIS
     Route: 042
  3. METHOTREXATE [Concomitant]
  4. PREDNISONE [Concomitant]

REACTIONS (1)
  - PNEUMOCYSTIS CARINII PNEUMONIA [None]
